FAERS Safety Report 11195416 (Version 1)
Quarter: 2015Q2

REPORT INFORMATION
  Report Type: Spontaneous
  Country: GB (occurrence: None)
  Receive Date: 20150615
  Receipt Date: 20150615
  Transmission Date: 20150821
  Serious: Yes (Hospitalization)
  Sender: FDA-Public Use
  Company Number: FK201502781

PATIENT
  Age: 42 Year
  Sex: Male

DRUGS (6)
  1. ALEMTUZUMAB [Concomitant]
     Active Substance: ALEMTUZUMAB
  2. ETOPOSIDE. [Concomitant]
     Active Substance: ETOPOSIDE
  3. DEXAMETHASONE. [Suspect]
     Active Substance: DEXAMETHASONE
     Indication: HISTIOCYTOSIS HAEMATOPHAGIC
     Dates: start: 20130805
  4. CICLOSPORIN [Concomitant]
     Active Substance: CYCLOSPORINE
     Indication: HISTIOCYTOSIS HAEMATOPHAGIC
  5. ANTITUBERCULARS [Concomitant]
  6. IMMUNOGLOBULINE [Concomitant]

REACTIONS (3)
  - Pancytopenia [None]
  - Hepatorenal failure [None]
  - Cytomegalovirus infection [None]

NARRATIVE: CASE EVENT DATE: 20131129
